FAERS Safety Report 5624859-5 (Version None)
Quarter: 2008Q1

REPORT INFORMATION
  Report Type: 
  Country: None (occurrence: None)
  Receive Date: 20080213
  Receipt Date: 20080204
  Transmission Date: 20080703
  Serious: Yes (Other)
  Sender: FDA-Public Use
  Company Number: US-JNJFOC-20080200953

PATIENT
  Age: 4 Decade
  Sex: Male

DRUGS (3)
  1. INVEGA [Suspect]
     Indication: SCHIZOAFFECTIVE DISORDER
     Route: 048
  2. SEROQUEL [Concomitant]
  3. ABILIFY [Concomitant]

REACTIONS (1)
  - DIABETIC KETOACIDOSIS [None]
